FAERS Safety Report 9507580 (Version 1)
Quarter: 2013Q3

REPORT INFORMATION
  Report Type: Spontaneous
  Country: US (occurrence: None)
  Receive Date: 20130906
  Receipt Date: 20130906
  Transmission Date: 20140515
  Serious: Yes (Disabling)
  Sender: FDA-Public Use
  Company Number: None

PATIENT
  Age: 29 Year
  Sex: Male
  Weight: 73.48 kg

DRUGS (2)
  1. BUPRENORPHINE/NALOXONE [Suspect]
     Indication: PAIN
     Dosage: TAKEN UNDER THE TONGUE
     Dates: start: 20130509, end: 20130905
  2. BUPRENORPHINE/NALOXONE [Suspect]
     Indication: MULTIPLE INJURIES
     Dosage: TAKEN UNDER THE TONGUE
     Dates: start: 20130509, end: 20130905

REACTIONS (9)
  - Withdrawal syndrome [None]
  - Terminal insomnia [None]
  - Diarrhoea [None]
  - Back pain [None]
  - Muscle spasms [None]
  - Insomnia [None]
  - Drug effect decreased [None]
  - Product substitution issue [None]
  - Product quality issue [None]
